FAERS Safety Report 15904391 (Version 1)
Quarter: 2019Q1

REPORT INFORMATION
  Report Type: Report from Study
  Country: DK (occurrence: DK)
  Receive Date: 20190204
  Receipt Date: 20190204
  Transmission Date: 20190417
  Serious: Yes (Other)
  Sender: FDA-Public Use
  Company Number: DK-ROCHE-2252501

PATIENT

DRUGS (2)
  1. IRINOTECAN [Suspect]
     Active Substance: IRINOTECAN
     Indication: GLIOBLASTOMA
     Route: 065
  2. BEVACIZUMAB. [Suspect]
     Active Substance: BEVACIZUMAB
     Indication: GLIOBLASTOMA
     Route: 065

REACTIONS (23)
  - Embolism [Unknown]
  - Proteinuria [Unknown]
  - Aspartate aminotransferase increased [Unknown]
  - Vomiting [Unknown]
  - Lymphopenia [Unknown]
  - Decreased appetite [Unknown]
  - Alanine aminotransferase increased [Unknown]
  - Thrombosis [Unknown]
  - Blood potassium abnormal [Unknown]
  - Gastrointestinal perforation [Unknown]
  - Alopecia [Unknown]
  - Stomatitis [Unknown]
  - Neutropenia [Unknown]
  - Pyrexia [Unknown]
  - Nausea [Unknown]
  - Dizziness [Unknown]
  - Hypertension [Unknown]
  - Fatigue [Unknown]
  - Haemorrhage [Unknown]
  - Seizure [Unknown]
  - Diarrhoea [Unknown]
  - Constipation [Unknown]
  - Infection [Unknown]
